FAERS Safety Report 9242608 (Version 10)
Quarter: 2022Q3

REPORT INFORMATION
  Report Type: Spontaneous
  Country: US (occurrence: US)
  Receive Date: 20130419
  Receipt Date: 20220821
  Transmission Date: 20221027
  Serious: Yes (Hospitalization, Other)
  Sender: FDA-Public Use
  Company Number: US-GLAXOSMITHKLINE-A1019755A

PATIENT
  Age: 54 Year
  Sex: Male

DRUGS (12)
  1. FLOLAN [Suspect]
     Active Substance: EPOPROSTENOL SODIUM
     Indication: Pulmonary arterial hypertension
     Dosage: 1.5 MG VIAL STRENGTH, 30,000 NG/ML AT UNKNOWN RATE FOR 18.5 NG/KG/MIN CONTINUOUSLYDOSE: 22.5 NG[...]
     Route: 042
     Dates: start: 20120209
  2. FLOLAN [Suspect]
     Active Substance: EPOPROSTENOL SODIUM
     Dosage: UNK
     Dates: start: 20120209
  3. FLOLAN [Suspect]
     Active Substance: EPOPROSTENOL SODIUM
     Dosage: UNK
     Dates: start: 20120209
  4. FLOLAN [Suspect]
     Active Substance: EPOPROSTENOL SODIUM
     Dosage: UNK
     Dates: start: 20120209
  5. FLOLAN [Suspect]
     Active Substance: EPOPROSTENOL SODIUM
     Dosage: 30 NG/KG/MIN CONTINUOUSLY; CONCENTRATION: 60,000 NG/ML; PUMP RATE: 73 ML/DAY; VIAL STRENGTH: 1.5 MG
     Route: 042
     Dates: start: 20120220
  6. FLOLAN [Suspect]
     Active Substance: EPOPROSTENOL SODIUM
     Dosage: 30 NG/KG/MIN CONTINUOUSLY; CONCENTRATION: 60,000 NG/ML; PUMP RATE: 73 ML/DAY; VIAL STRENGTH: 1.5 MG
     Route: 042
     Dates: start: 20120209
  7. UNSPECIFIED INGREDIENT [Suspect]
     Active Substance: UNSPECIFIED INGREDIENT
     Indication: Product used for unknown indication
     Route: 065
  8. SILDENAFIL [Concomitant]
     Active Substance: SILDENAFIL
     Dosage: 100 MG, TID
  9. BOSENTAN [Concomitant]
     Active Substance: BOSENTAN
  10. REVATIO [Concomitant]
     Active Substance: SILDENAFIL CITRATE
  11. COUMADIN [Concomitant]
     Active Substance: WARFARIN SODIUM
  12. TRACLEER [Concomitant]
     Active Substance: BOSENTAN
     Dosage: 125 MG, BID

REACTIONS (12)
  - Hospitalisation [Unknown]
  - Catheter management [Recovered/Resolved]
  - Central venous catheterisation [Recovered/Resolved]
  - Device breakage [Recovered/Resolved]
  - Migraine [Unknown]
  - Headache [Unknown]
  - Complication associated with device [Unknown]
  - Infusion site haemorrhage [Unknown]
  - Infusion site pain [Unknown]
  - Disturbance in attention [Unknown]
  - Device malfunction [Unknown]
  - Catheter site haemorrhage [Unknown]

NARRATIVE: CASE EVENT DATE: 20131022
